FAERS Safety Report 25402227 (Version 2)
Quarter: 2025Q2

REPORT INFORMATION
  Report Type: Spontaneous
  Country: US (occurrence: US)
  Receive Date: 20250605
  Receipt Date: 20250618
  Transmission Date: 20250716
  Serious: Yes (Life-Threatening, Hospitalization)
  Sender: TEVA
  Company Number: US-TEVA-VS-3337959

PATIENT
  Age: 15 Year
  Sex: Male

DRUGS (29)
  1. EPINEPHRINE [Suspect]
     Active Substance: EPINEPHRINE
     Indication: Cardiogenic shock
     Route: 065
  2. AMIODARONE [Suspect]
     Active Substance: AMIODARONE
     Indication: Atrial flutter
     Route: 048
  3. AMIODARONE [Suspect]
     Active Substance: AMIODARONE
     Indication: Atrial flutter
     Route: 048
  4. AMIODARONE [Suspect]
     Active Substance: AMIODARONE
     Indication: Atrial flutter
     Route: 048
  5. AMIODARONE [Suspect]
     Active Substance: AMIODARONE
     Indication: Atrial flutter
     Route: 048
  6. METHIMAZOLE [Suspect]
     Active Substance: METHIMAZOLE
     Indication: Hyperthyroidism
     Route: 065
  7. DOFETILIDE [Suspect]
     Active Substance: DOFETILIDE
     Indication: Atrial flutter
     Route: 065
  8. DOFETILIDE [Suspect]
     Active Substance: DOFETILIDE
     Indication: Atrial flutter
     Route: 065
  9. DOFETILIDE [Suspect]
     Active Substance: DOFETILIDE
     Indication: Atrial flutter
     Route: 065
  10. LEVOFLOXACIN [Concomitant]
     Active Substance: LEVOFLOXACIN
     Indication: Klebsiella infection
     Route: 065
  11. MILRINONE [Suspect]
     Active Substance: MILRINONE
     Indication: Atrial flutter
     Route: 065
  12. PROPYLTHIOURACIL [Suspect]
     Active Substance: PROPYLTHIOURACIL
     Indication: Hyperthyroidism
     Route: 065
  13. PROPRANOLOL [Suspect]
     Active Substance: PROPRANOLOL HYDROCHLORIDE
     Indication: Hypertrophic cardiomyopathy
     Route: 065
  14. VERAPAMIL [Suspect]
     Active Substance: VERAPAMIL HYDROCHLORIDE
     Indication: Hypertrophic cardiomyopathy
     Route: 065
  15. VASOPRESSIN [Suspect]
     Active Substance: VASOPRESSIN
     Indication: Cardiogenic shock
     Route: 065
  16. METOPROLOL [Suspect]
     Active Substance: METOPROLOL
     Indication: Atrial flutter
     Route: 065
  17. DILTIAZEM [Suspect]
     Active Substance: DILTIAZEM
     Indication: Atrial flutter
     Route: 065
  18. PREDNISONE [Suspect]
     Active Substance: PREDNISONE
     Indication: Hyperthyroidism
     Route: 065
  19. VANCOMYCIN [Concomitant]
     Active Substance: VANCOMYCIN
     Indication: Pneumonia aspiration
     Route: 065
  20. ADENOSINE [Suspect]
     Active Substance: ADENOSINE
     Indication: Atrial flutter
     Route: 065
  21. ESMOLOL [Suspect]
     Active Substance: ESMOLOL HYDROCHLORIDE
     Indication: Atrial flutter
     Route: 065
  22. METRONIDAZOLE [Concomitant]
     Active Substance: METRONIDAZOLE
     Indication: Pneumonia aspiration
     Route: 065
  23. CEFEPIME [Concomitant]
     Active Substance: CEFEPIME HYDROCHLORIDE
     Indication: Pneumonia aspiration
     Route: 065
  24. OMAVELOXOLONE [Suspect]
     Active Substance: OMAVELOXOLONE
     Indication: Friedreich^s ataxia
     Route: 065
  25. DIGOXIN [Suspect]
     Active Substance: DIGOXIN
     Indication: Atrial flutter
     Route: 065
  26. NOREPINEPHRINE [Suspect]
     Active Substance: NOREPINEPHRINE
     Indication: Cardiogenic shock
     Route: 065
  27. DEVICE [Suspect]
     Active Substance: DEVICE
  28. AMIODARONE [Suspect]
     Active Substance: AMIODARONE
     Indication: Atrial flutter
     Dosage: CONTINUOUS INFUSION FOR THE FIRST 6H
     Route: 065
  29. AMIODARONE [Suspect]
     Active Substance: AMIODARONE
     Indication: Atrial flutter
     Route: 065

REACTIONS (8)
  - Toxicity to various agents [Unknown]
  - Acute kidney injury [Unknown]
  - Cardiac arrest [Unknown]
  - Acute left ventricular failure [Unknown]
  - Cardiogenic shock [Unknown]
  - Drug ineffective [Unknown]
  - Hyperthyroidism [Unknown]
  - Ventricular tachycardia [Unknown]
